FAERS Safety Report 5295477-6 (Version None)
Quarter: 2007Q2

REPORT INFORMATION
  Report Type: 
  Country: None (occurrence: None)
  Receive Date: 20070412
  Receipt Date: 20070330
  Transmission Date: 20071010
  Serious: Yes (Other)
  Sender: FDA-Public Use
  Company Number: JP-MERCK-0703USA03351

PATIENT
  Age: 43 Year
  Sex: Female

DRUGS (24)
  1. PEPCID [Suspect]
     Indication: ACUTE PROMYELOCYTIC LEUKAEMIA
     Route: 041
     Dates: start: 20061122, end: 20061123
  2. TARGOCID [Suspect]
     Indication: ACUTE TONSILLITIS
     Route: 041
     Dates: start: 20061119, end: 20061123
  3. TARGOCID [Suspect]
     Indication: STAPHYLOCOCCAL INFECTION
     Route: 041
     Dates: start: 20061119, end: 20061123
  4. DORIPENEM [Suspect]
     Indication: ACUTE TONSILLITIS
     Route: 041
     Dates: start: 20061119, end: 20061123
  5. DORIPENEM [Suspect]
     Indication: STAPHYLOCOCCAL INFECTION
     Route: 041
     Dates: start: 20061119, end: 20061123
  6. [THERAPY UNSPECIFIED] [Concomitant]
     Route: 041
     Dates: start: 20061121, end: 20061123
  7. PRODIF [Concomitant]
     Indication: ACUTE PROMYELOCYTIC LEUKAEMIA
     Route: 041
     Dates: start: 20061123, end: 20061123
  8. HABEKACIN [Concomitant]
     Indication: ACUTE TONSILLITIS
     Route: 041
     Dates: start: 20061125, end: 20061129
  9. HABEKACIN [Concomitant]
     Indication: STAPHYLOCOCCAL INFECTION
     Route: 041
     Dates: start: 20061125, end: 20061129
  10. PENTCILLIN [Concomitant]
     Indication: ACUTE TONSILLITIS
     Route: 065
     Dates: start: 20061125, end: 20061129
  11. PENTCILLIN [Concomitant]
     Indication: STAPHYLOCOCCAL INFECTION
     Route: 065
     Dates: start: 20061125, end: 20061129
  12. NEO-MINOPHAGEN C [Concomitant]
     Indication: LIVER DISORDER
     Route: 041
     Dates: start: 20061123, end: 20061127
  13. LEUKOPROL [Concomitant]
     Indication: ACUTE PROMYELOCYTIC LEUKAEMIA
     Route: 041
     Dates: start: 20061117, end: 20061124
  14. GRAN [Concomitant]
     Indication: ACUTE PROMYELOCYTIC LEUKAEMIA
     Route: 041
     Dates: start: 20061125, end: 20061127
  15. CYTARABINE [Concomitant]
     Indication: ACUTE PROMYELOCYTIC LEUKAEMIA
     Route: 041
     Dates: start: 20061107, end: 20061112
  16. SOLU-MEDROL [Concomitant]
     Indication: ACUTE PROMYELOCYTIC LEUKAEMIA
     Route: 041
     Dates: start: 20061107, end: 20061112
  17. NOVANTRONE [Concomitant]
     Indication: ACUTE PROMYELOCYTIC LEUKAEMIA
     Route: 041
     Dates: start: 20061109, end: 20061111
  18. NASEA [Concomitant]
     Indication: ACUTE PROMYELOCYTIC LEUKAEMIA
     Route: 041
     Dates: start: 20061107, end: 20061112
  19. DIFLUCAN [Concomitant]
     Indication: ACUTE PROMYELOCYTIC LEUKAEMIA
     Route: 048
     Dates: start: 20061106, end: 20061122
  20. SWORD [Concomitant]
     Indication: ACUTE PROMYELOCYTIC LEUKAEMIA
     Route: 048
     Dates: start: 20061106, end: 20061122
  21. MAXIPIME [Concomitant]
     Indication: ACUTE PROMYELOCYTIC LEUKAEMIA
     Route: 041
     Dates: start: 20061115, end: 20061118
  22. PLATELET CONCENTRATE [Concomitant]
     Route: 065
     Dates: start: 20061118
  23. MANNITOL [Concomitant]
     Route: 065
     Dates: start: 20061118, end: 20061124
  24. GRAN [Concomitant]
     Route: 065

REACTIONS (2)
  - DRUG ERUPTION [None]
  - LIVER DISORDER [None]
